FAERS Safety Report 14619882 (Version 2)
Quarter: 2018Q1

REPORT INFORMATION
  Report Type: Spontaneous
  Country: JP (occurrence: JP)
  Receive Date: 20180309
  Receipt Date: 20180328
  Transmission Date: 20180509
  Serious: Yes (Life-Threatening, Hospitalization)
  Sender: FDA-Public Use
  Company Number: JP-PFIZER INC-2017282195

PATIENT
  Age: 96 Year
  Sex: Female
  Weight: 40 kg

DRUGS (22)
  1. CEFTRIAXONE SODIUM. [Suspect]
     Active Substance: CEFTRIAXONE SODIUM
     Indication: ANTIBIOTIC THERAPY
     Dosage: 1 G, DAILY
     Route: 042
  2. CELECOX [Concomitant]
     Active Substance: CELECOXIB
     Indication: BACK PAIN
     Dosage: UNK, DAILY
     Route: 048
  3. CARBOCYSTEINE [Concomitant]
     Active Substance: CARBOCYSTEINE
     Dosage: UNK, DAILY
  4. BISOPROLOL [Concomitant]
     Active Substance: BISOPROLOL
     Indication: CEREBROVASCULAR ACCIDENT
  5. CEFTRIAXONE SODIUM. [Interacting]
     Active Substance: CEFTRIAXONE SODIUM
     Indication: PYREXIA
  6. CANDESARTAN. [Concomitant]
     Active Substance: CANDESARTAN
     Indication: HYPERTENSION
     Dosage: UNK, DAILY
     Route: 048
  7. TRANEXAMIC ACID. [Concomitant]
     Active Substance: TRANEXAMIC ACID
     Dosage: UNK, DAILY
  8. BISOPROLOL [Concomitant]
     Active Substance: BISOPROLOL
     Indication: HYPERTENSION
     Dosage: UNK, DAILY
  9. BISOPROLOL [Concomitant]
     Active Substance: BISOPROLOL
     Indication: ATRIAL FIBRILLATION
  10. GENINAX [Interacting]
     Active Substance: GARENOXACIN MESYLATE
     Indication: ANTIBIOTIC THERAPY
     Dosage: UNK
  11. LANSOPRAZOLE. [Concomitant]
     Active Substance: LANSOPRAZOLE
     Indication: GASTRITIS
     Dosage: UNK, DAILY
     Route: 048
  12. ZALTOPROFEN [Concomitant]
     Active Substance: ZALTOPROFEN
     Dosage: UNK, DAILY
  13. BROTIZOLAM [Concomitant]
     Active Substance: BROTIZOLAM
     Dosage: UNK UNK, DAILY
  14. GENINAX [Interacting]
     Active Substance: GARENOXACIN MESYLATE
     Indication: DECREASED APPETITE
  15. AMLODIPINE [Concomitant]
     Active Substance: AMLODIPINE BESYLATE
     Indication: HYPERTENSION
     Dosage: UNK, DAILY
     Route: 048
  16. AMLODIPINE [Concomitant]
     Active Substance: AMLODIPINE BESYLATE
     Indication: ATRIAL FIBRILLATION
  17. CANDESARTAN. [Concomitant]
     Active Substance: CANDESARTAN
     Indication: ATRIAL FIBRILLATION
  18. CANDESARTAN. [Concomitant]
     Active Substance: CANDESARTAN
     Indication: CEREBROVASCULAR ACCIDENT
  19. AMLODIPINE [Concomitant]
     Active Substance: AMLODIPINE BESYLATE
     Indication: CEREBROVASCULAR ACCIDENT
  20. RIVAROXABAN [Concomitant]
     Active Substance: RIVAROXABAN
     Dosage: UNK, DAILY
  21. GENINAX [Interacting]
     Active Substance: GARENOXACIN MESYLATE
     Indication: COUGH
  22. GENINAX [Interacting]
     Active Substance: GARENOXACIN MESYLATE
     Indication: DYSPNOEA

REACTIONS (3)
  - Pneumonia [Recovering/Resolving]
  - Agranulocytosis [Recovering/Resolving]
  - Drug interaction [Recovering/Resolving]
